APPROVED DRUG PRODUCT: OXALIPLATIN
Active Ingredient: OXALIPLATIN
Strength: 50MG/10ML (5MG/ML)
Dosage Form/Route: INJECTABLE;INTRAVENOUS
Application: A207562 | Product #001
Applicant: NOVAST LABORATORIES LTD
Approved: Oct 16, 2018 | RLD: No | RS: No | Type: DISCN